FAERS Safety Report 7431921-3 (Version None)
Quarter: 2011Q1

REPORT INFORMATION
  Report Type: 
  Country: None (occurrence: None)
  Receive Date: 20110302
  Receipt Date: 20101025
  Transmission Date: 20110831
  Serious: No
  Sender: FDA-Public Use
  Company Number: 021068

PATIENT
  Sex: Female

DRUGS (2)
  1. CIMZIA [Suspect]
     Dosage: SUBCUTANEOUS, BOOSTER DOSE SUBCUTANEOUS
     Route: 058
     Dates: start: 20090520
  2. PREDNISONE [Suspect]

REACTIONS (3)
  - INJECTION SITE PAIN [None]
  - DRUG INEFFECTIVE [None]
  - CONDITION AGGRAVATED [None]
